FAERS Safety Report 5532952-0 (Version None)
Quarter: 2007Q4

REPORT INFORMATION
  Report Type: 
  Country: None (occurrence: None)
  Receive Date: 20071204
  Receipt Date: 20071126
  Transmission Date: 20080405
  Serious: Yes (Other)
  Sender: FDA-Public Use
  Company Number: US-RANBAXY-2006US-04781

PATIENT

DRUGS (2)
  1. ISOTRETINOIN [Suspect]
     Indication: DRUG USE FOR UNKNOWN INDICATION
     Dosage: 20 MG, BID
     Route: 048
     Dates: start: 20060718, end: 20060817
  2. ISOTRETINOIN [Suspect]
     Dosage: 20 MG, BID
     Route: 048
     Dates: start: 20061103, end: 20061107

REACTIONS (3)
  - DRUG EXPOSURE DURING PREGNANCY [None]
  - PREGNANCY [None]
  - TREATMENT NONCOMPLIANCE [None]
